FAERS Safety Report 13668272 (Version 1)
Quarter: 2017Q2

REPORT INFORMATION
  Report Type: Spontaneous
  Country: US (occurrence: US)
  Receive Date: 20170619
  Receipt Date: 20170619
  Transmission Date: 20170830
  Serious: Yes (Hospitalization)
  Sender: FDA-Public Use
  Company Number: None

PATIENT
  Age: 27 Year
  Sex: Male
  Weight: 70.3 kg

DRUGS (2)
  1. CLOAZPINE [Suspect]
     Active Substance: CLOZAPINE
     Indication: SCHIZOPHRENIA
  2. DIVALPROEX [Suspect]
     Active Substance: DIVALPROEX SODIUM
     Indication: SCHIZOPHRENIA
     Dates: start: 20161101, end: 20170315

REACTIONS (8)
  - Pneumatosis [None]
  - Hypotension [None]
  - Pneumonia [None]
  - Seizure [None]
  - Pericardial effusion [None]
  - Serositis [None]
  - Cardiac tamponade [None]
  - Drug level increased [None]

NARRATIVE: CASE EVENT DATE: 20170315
